FAERS Safety Report 17023884 (Version 12)
Quarter: 2020Q4

REPORT INFORMATION
  Report Type: Report from Study
  Country: None (occurrence: NL)
  Receive Date: 20191113
  Receipt Date: 20201115
  Transmission Date: 20210113
  Serious: Yes (Other)
  Sender: FDA-Public Use
  Company Number: NL-ABBVIE-17K-114-2082920-00

PATIENT
  Age: 79 Year
  Sex: Female
  Weight: 50 kg

DRUGS (12)
  1. DUODOPA [Suspect]
     Active Substance: CARBIDOPA\LEVODOPA
     Dosage: MD 2.2, CD 2.2, ED 1.0
     Route: 050
  2. DUODOPA [Suspect]
     Active Substance: CARBIDOPA\LEVODOPA
     Indication: PARKINSON^S DISEASE
     Dosage: MD: 4.8, CD: 1.4, ED: 0.5
     Route: 050
     Dates: start: 20170606
  3. DUODOPA [Suspect]
     Active Substance: CARBIDOPA\LEVODOPA
     Dosage: CD WAS INCREASED BY 0.1 ML
     Route: 050
  4. DUODOPA [Suspect]
     Active Substance: CARBIDOPA\LEVODOPA
     Dosage: CD: 1.9, ED: 1.5
     Route: 050
  5. MADOPAR HBS [Concomitant]
     Active Substance: BENSERAZIDE HYDROCHLORIDE\LEVODOPA
     Indication: PARKINSON^S DISEASE
     Dosage: ONCE DAILY, AT 21.30 HR
  6. MADOPAR DISPER [Concomitant]
     Active Substance: BENSERAZIDE HYDROCHLORIDE\LEVODOPA
     Indication: PARKINSON^S DISEASE
     Dosage: AT 21.30, 00.00 H AND BEFORE 4.30 H
  7. DUODOPA [Suspect]
     Active Substance: CARBIDOPA\LEVODOPA
     Dosage: MD: 2.7 ML, CD: 2.2 ML/HR, ED: 1.0 ML
     Route: 050
  8. DUODOPA [Suspect]
     Active Substance: CARBIDOPA\LEVODOPA
     Dosage: MD: 5.2, CD: 1.5, ED: 0.8
     Route: 050
     Dates: end: 201810
  9. DUODOPA [Suspect]
     Active Substance: CARBIDOPA\LEVODOPA
     Dosage: CD: 1.9, ED: 1.5
     Route: 050
  10. DUODOPA [Suspect]
     Active Substance: CARBIDOPA\LEVODOPA
     Dosage: MD 5.2 CD 2.0 ED 1.5 (CD INCREASED FROM 1.9 TO 2.0)
     Route: 050
     Dates: end: 2019
  11. DUODOPA [Suspect]
     Active Substance: CARBIDOPA\LEVODOPA
     Dosage: MD: 5.2, CD: 1.5, ED: 1.0
     Route: 050
     Dates: start: 201810
  12. DUODOPA [Suspect]
     Active Substance: CARBIDOPA\LEVODOPA
     Dosage: MD: 3.2 CD: 2.2 ED: 1.0; REMAINS AT 16 HOURS
     Route: 050

REACTIONS (57)
  - Poor quality sleep [Not Recovered/Not Resolved]
  - Stress [Unknown]
  - Memory impairment [Not Recovered/Not Resolved]
  - Impaired healing [Not Recovered/Not Resolved]
  - Malaise [Unknown]
  - Gastroenteritis viral [Recovering/Resolving]
  - Abnormal dreams [Recovered/Resolved]
  - Stoma site discharge [Recovered/Resolved]
  - Stoma site pain [Recovering/Resolving]
  - Hypokinesia [Unknown]
  - Therapeutic product effect incomplete [Not Recovered/Not Resolved]
  - Unevaluable event [Not Recovered/Not Resolved]
  - Nightmare [Not Recovered/Not Resolved]
  - Tension [Not Recovered/Not Resolved]
  - Metamorphopsia [Not Recovered/Not Resolved]
  - Mobility decreased [Not Recovered/Not Resolved]
  - Medical device site injury [Not Recovered/Not Resolved]
  - Tremor [Not Recovered/Not Resolved]
  - Fatigue [Recovered/Resolved]
  - Gait disturbance [Not Recovered/Not Resolved]
  - Stoma site pain [Recovered/Resolved]
  - Stoma site erythema [Not Recovered/Not Resolved]
  - Stoma site erythema [Recovered/Resolved]
  - Stoma site irritation [Recovered/Resolved]
  - Hyperkinesia [Recovered/Resolved]
  - Medical device site scar [Not Recovered/Not Resolved]
  - Device alarm issue [Unknown]
  - Stoma site irritation [Not Recovered/Not Resolved]
  - Stoma site discharge [Not Recovered/Not Resolved]
  - Dyskinesia [Recovered/Resolved]
  - Drug ineffective [Recovered/Resolved]
  - Therapeutic response shortened [Unknown]
  - Bradykinesia [Not Recovered/Not Resolved]
  - Restlessness [Unknown]
  - Stomal hernia [Not Recovered/Not Resolved]
  - Fibroma [Not Recovered/Not Resolved]
  - Feeling abnormal [Not Recovered/Not Resolved]
  - Muscle rigidity [Not Recovered/Not Resolved]
  - Therapeutic product effect decreased [Unknown]
  - Embedded device [Recovered/Resolved]
  - Condition aggravated [Not Recovered/Not Resolved]
  - Stress [Not Recovered/Not Resolved]
  - Panic reaction [Recovered/Resolved]
  - Stoma site pain [Recovered/Resolved]
  - On and off phenomenon [Not Recovered/Not Resolved]
  - Freezing phenomenon [Not Recovered/Not Resolved]
  - Freezing phenomenon [Recovered/Resolved]
  - Impaired quality of life [Unknown]
  - Medical device site hypertrophy [Not Recovered/Not Resolved]
  - Abnormal faeces [Recovered/Resolved]
  - Drug ineffective [Not Recovered/Not Resolved]
  - Hallucination [Not Recovered/Not Resolved]
  - Device alarm issue [Unknown]
  - Walking aid user [Not Recovered/Not Resolved]
  - Feeling abnormal [Recovering/Resolving]
  - Mood altered [Not Recovered/Not Resolved]
  - Dyskinesia [Not Recovered/Not Resolved]

NARRATIVE: CASE EVENT DATE: 201708
